FAERS Safety Report 7451547-5 (Version None)
Quarter: 2011Q2

REPORT INFORMATION
  Report Type: 
  Country: None (occurrence: None)
  Receive Date: 20110502
  Receipt Date: 20100322
  Transmission Date: 20111010
  Serious: No
  Sender: FDA-Public Use
  Company Number: US-ASTRAZENECA-2010SE12538

PATIENT
  Age: 50 Year
  Sex: Female

DRUGS (1)
  1. NEXIUM [Suspect]
     Indication: GASTROOESOPHAGEAL REFLUX DISEASE
     Route: 048
     Dates: start: 20100319

REACTIONS (6)
  - NAUSEA [None]
  - OROPHARYNGEAL PAIN [None]
  - MUSCLE SPASMS [None]
  - ABDOMINAL DISTENSION [None]
  - HOT FLUSH [None]
  - DRY MOUTH [None]
